FAERS Safety Report 8557392-1 (Version None)
Quarter: 2012Q3

REPORT INFORMATION
  Report Type: 
  Country: None (occurrence: None)
  Receive Date: 20120801
  Receipt Date: 20120727
  Transmission Date: 20120928
  Serious: Yes (Hospitalization)
  Sender: FDA-Public Use
  Company Number: IT-SHIRE-CQT2-2010-00005

PATIENT

DRUGS (4)
  1. INTERFERON [Suspect]
     Indication: ESSENTIAL THROMBOCYTHAEMIA
     Dosage: 3 MIU, THREE TIMES PER WEEK
     Route: 058
     Dates: start: 20020520, end: 20030313
  2. TICLOPIDINE HYDROCHLORIDE [Interacting]
     Indication: THROMBOCYTOSIS
     Dosage: 250 MG, 1X/DAY:QD
     Route: 048
     Dates: start: 19941017
  3. ANAGRELIDE HCL [Interacting]
     Indication: ESSENTIAL THROMBOCYTHAEMIA
     Dosage: .5 MG, 2X/DAY:BID
     Route: 048
     Dates: start: 20070604, end: 20091007
  4. HYDROXYUREA [Suspect]
     Indication: ESSENTIAL THROMBOCYTHAEMIA
     Dosage: 17.5 MG, MONTHLY
     Route: 048
     Dates: start: 19941017, end: 20020301

REACTIONS (2)
  - ATRIAL FIBRILLATION [None]
  - DRUG INTERACTION [None]
